FAERS Safety Report 4820923-9 (Version None)
Quarter: 2005Q4

REPORT INFORMATION
  Report Type: 
  Country: None (occurrence: None)
  Receive Date: 20051104
  Receipt Date: 20051024
  Transmission Date: 20060501
  Serious: Yes (Other)
  Sender: FDA-Public Use
  Company Number: DK-BRISTOL-MYERS SQUIBB COMPANY-13161955

PATIENT
  Age: 57 Year
  Sex: Female

DRUGS (1)
  1. DAIVONEX [Suspect]
     Indication: PSORIASIS
     Route: 061
     Dates: start: 20050925, end: 20050925

REACTIONS (3)
  - ERYTHEMA [None]
  - PAIN OF SKIN [None]
  - SKIN SWELLING [None]
